FAERS Safety Report 7425918-7 (Version None)
Quarter: 2011Q2

REPORT INFORMATION
  Report Type: 
  Country: None (occurrence: None)
  Receive Date: 20110420
  Receipt Date: 20110413
  Transmission Date: 20111010
  Serious: Yes (Other)
  Sender: FDA-Public Use
  Company Number: BR-ROCHE-769160

PATIENT
  Age: 52 Year
  Sex: Male

DRUGS (3)
  1. PEGINTERFERON ALFA-2B [Suspect]
     Dosage: FOR 40 WEEKS
     Route: 058
     Dates: start: 20041126
  2. RIBAVIRIN [Suspect]
     Dosage: FOR 48 WEEKS
     Route: 048
     Dates: start: 20041126
  3. PEGINTERFERON ALFA-2B [Suspect]
     Dosage: 41ST WEEK ONWARDS
     Route: 058

REACTIONS (9)
  - COAGULATION FACTOR DEFICIENCY [None]
  - CUTANEOUS LUPUS ERYTHEMATOSUS [None]
  - HYPOTHYROIDISM [None]
  - DECREASED APPETITE [None]
  - INFLUENZA LIKE ILLNESS [None]
  - WEIGHT DECREASED [None]
  - HAEMORRHAGE [None]
  - FATIGUE [None]
  - APATHY [None]
